FAERS Safety Report 5751008-5 (Version None)
Quarter: 2008Q2

REPORT INFORMATION
  Report Type: 
  Country: None (occurrence: None)
  Receive Date: 20080528
  Receipt Date: 20080523
  Transmission Date: 20081010
  Serious: Yes (Hospitalization)
  Sender: FDA-Public Use
  Company Number: JP-BAYER-200810645BYL

PATIENT
  Age: 47 Year
  Sex: Female

DRUGS (5)
  1. AVELOX [Suspect]
     Indication: PARONYCHIA
     Dosage: TOTAL DAILY DOSE: 400 MG  UNIT DOSE: 400 MG
     Route: 048
     Dates: start: 20080328, end: 20080401
  2. BIOFERMIN R [Concomitant]
     Indication: PROPHYLAXIS AGAINST DIARRHOEA
     Route: 048
     Dates: start: 20080328, end: 20080401
  3. DOLUCEFAN [Concomitant]
     Indication: PARONYCHIA
     Route: 048
     Dates: start: 20080307
  4. CEACNALON [Concomitant]
     Indication: PARONYCHIA
     Route: 048
     Dates: start: 20080307
  5. TRANEXAN [Concomitant]
     Indication: PARONYCHIA
     Route: 048
     Dates: start: 20080307

REACTIONS (6)
  - DIZZINESS [None]
  - FEELING COLD [None]
  - FEELING HOT [None]
  - HEADACHE [None]
  - HYPOAESTHESIA [None]
  - NAUSEA [None]
